FAERS Safety Report 13054197 (Version 1)
Quarter: 2016Q4

REPORT INFORMATION
  Report Type: Report from Study
  Country: JP (occurrence: JP)
  Receive Date: 20161222
  Receipt Date: 20161222
  Transmission Date: 20170207
  Serious: Yes (Other)
  Sender: FDA-Public Use
  Company Number: JP-ASTRAZENECA-2016SF33002

PATIENT
  Age: 74 Year
  Sex: Male

DRUGS (8)
  1. GLUFAST [Concomitant]
     Active Substance: MITIGLINIDE
     Indication: TYPE 2 DIABETES MELLITUS
     Route: 048
  2. NEXIUM [Concomitant]
     Active Substance: ESOMEPRAZOLE MAGNESIUM
     Route: 048
  3. CO-DIO [Concomitant]
     Active Substance: HYDROCHLOROTHIAZIDE\VALSARTAN
     Dosage: OPTIMAL DOSE
     Route: 048
  4. TRAZENTA [Concomitant]
     Active Substance: LINAGLIPTIN
     Indication: TYPE 2 DIABETES MELLITUS
     Route: 048
  5. FORXIGA [Suspect]
     Active Substance: DAPAGLIFLOZIN
     Indication: TYPE 2 DIABETES MELLITUS
     Dosage: MORNINGS
     Route: 048
     Dates: start: 20150803
  6. WARFARIN POTASSIUM [Concomitant]
     Active Substance: WARFARIN POTASSIUM
     Route: 048
  7. ATELEC [Concomitant]
     Active Substance: CILNIDIPINE
     Route: 048
  8. ATENOTE [Concomitant]
     Active Substance: CARVEDILOL
     Route: 048

REACTIONS (1)
  - Acute myocardial infarction [Recovered/Resolved with Sequelae]

NARRATIVE: CASE EVENT DATE: 20160822
